FAERS Safety Report 13367724 (Version 1)
Quarter: 2017Q1

REPORT INFORMATION
  Report Type: Spontaneous
  Country: FR (occurrence: FR)
  Receive Date: 20170324
  Receipt Date: 20170324
  Transmission Date: 20170429
  Serious: Yes (Hospitalization)
  Sender: FDA-Public Use
  Company Number: FR-SA-2017SA046809

PATIENT
  Age: 77 Year
  Sex: Male

DRUGS (3)
  1. BACTRIM [Suspect]
     Active Substance: SULFAMETHOXAZOLE\TRIMETHOPRIM
     Indication: INFECTION
     Route: 048
     Dates: start: 20170118, end: 20170227
  2. OFLOCET [Suspect]
     Active Substance: OFLOXACIN
     Indication: INFECTION
     Dosage: FREQUENCY- 3 DAY
     Route: 048
     Dates: start: 20170109, end: 20170227
  3. RIFAMPICIN [Suspect]
     Active Substance: RIFAMPIN
     Indication: INFECTION
     Dosage: FREQUENCY- 3 DAYS
     Route: 048
     Dates: start: 20170109, end: 20170227

REACTIONS (1)
  - Drug reaction with eosinophilia and systemic symptoms [Recovered/Resolved]

NARRATIVE: CASE EVENT DATE: 20170220
